FAERS Safety Report 6535383-X (Version None)
Quarter: 2009Q4

REPORT INFORMATION
  Report Type: 
  Country: None (occurrence: None)
  Receive Date: 20091228
  Receipt Date: 20090812
  Transmission Date: 20100525
  Serious: Yes (Other)
  Sender: FDA-Public Use
  Company Number: US-003290

PATIENT
  Age: 35 Year
  Sex: Female
  Weight: 70 kg

DRUGS (2)
  1. MULTIHANCE [Suspect]
     Indication: CONVULSION
     Dosage: 14ML QD INTRAVENOUS
     Route: 042
     Dates: start: 20090812, end: 20090812
  2. MULTIHANCE [Suspect]
     Indication: NUCLEAR MAGNETIC RESONANCE IMAGING
     Dosage: 14ML QD INTRAVENOUS
     Route: 042
     Dates: start: 20090812, end: 20090812

REACTIONS (5)
  - DYSPNOEA [None]
  - GENERALISED ERYTHEMA [None]
  - NAUSEA [None]
  - PALLOR [None]
  - VOMITING [None]
